FAERS Safety Report 18774324 (Version 1)
Quarter: 2021Q1

REPORT INFORMATION
  Report Type: Spontaneous
  Country: US (occurrence: US)
  Receive Date: 20210122
  Receipt Date: 20210122
  Transmission Date: 20210419
  Serious: Yes (Other)
  Sender: FDA-Public Use
  Company Number: None

PATIENT
  Age: 50 Year
  Sex: Female
  Weight: 125.55 kg

DRUGS (10)
  1. LISINOPRIL 20?25 MG TABLET [Concomitant]
  2. LABETALOL 300 MG TABLET [Concomitant]
  3. SUMATRIPTAN 50 MG TABLET [Concomitant]
  4. ESCITALOPRAM 20 MG TABLET [Concomitant]
  5. ALBUTEROL 108 MCG/ACT [Concomitant]
  6. TRIAMCINOLONE 0.1% OINTMENT [Concomitant]
     Active Substance: TRIAMCINOLONE ACETONIDE
  7. AIMOVIG [Suspect]
     Active Substance: ERENUMAB-AOOE
     Indication: MIGRAINE
     Dosage: ?          OTHER FREQUENCY:EVERY 28 DAYS;?
     Route: 058
     Dates: start: 20181025
  8. SIMVASTATIN 20 MG TABLET [Concomitant]
     Active Substance: SIMVASTATIN
  9. PHENTERMINE 30MG CAPSULE [Concomitant]
  10. MONTELUKAST 10 MG TABLET [Concomitant]
     Active Substance: MONTELUKAST SODIUM

REACTIONS (1)
  - Alopecia [None]

NARRATIVE: CASE EVENT DATE: 20210122
